FAERS Safety Report 8361822-8 (Version None)
Quarter: 2012Q2

REPORT INFORMATION
  Report Type: 
  Country: None (occurrence: None)
  Receive Date: 20120515
  Receipt Date: 20120504
  Transmission Date: 20120825
  Serious: Yes (Hospitalization)
  Sender: FDA-Public Use
  Company Number: FR-GLAXOSMITHKLINE-B0799597A

PATIENT
  Sex: Female

DRUGS (4)
  1. CEFUROXIME [Suspect]
     Indication: PRODUCT USED FOR UNKNOWN INDICATION
     Route: 042
     Dates: start: 20110114, end: 20110114
  2. NIMBEX [Suspect]
     Indication: ANAESTHESIA
     Route: 042
     Dates: start: 20110114, end: 20110114
  3. SEVOFLURANE [Suspect]
     Indication: ANAESTHESIA
     Route: 042
     Dates: start: 20110114, end: 20110114
  4. SUFENTANIL CITRATE [Suspect]
     Indication: ANAESTHESIA
     Route: 042
     Dates: start: 20110114, end: 20110114

REACTIONS (5)
  - DIPLOPIA [None]
  - HYPERTHERMIA MALIGNANT [None]
  - TACHYCARDIA [None]
  - VIITH NERVE PARALYSIS [None]
  - HYPERCAPNIA [None]
